FAERS Safety Report 6146807-4 (Version None)
Quarter: 2009Q2

REPORT INFORMATION
  Report Type: 
  Country: None (occurrence: None)
  Receive Date: 20090406
  Receipt Date: 20090406
  Transmission Date: 20091009
  Serious: Yes (Other)
  Sender: FDA-Public Use
  Company Number: None

PATIENT
  Age: 87 Year
  Sex: Female
  Weight: 68.0396 kg

DRUGS (2)
  1. GABAPENTIN [Suspect]
     Indication: OSTEOPENIA
     Dosage: 100 MG ONCE ORAL
     Route: 048
     Dates: start: 20090127
  2. GABAPENTIN [Suspect]
     Indication: SPINAL COLUMN STENOSIS
     Dosage: 100 MG ONCE ORAL
     Route: 048
     Dates: start: 20090127

REACTIONS (5)
  - DRY SKIN [None]
  - OEDEMA PERIPHERAL [None]
  - PAIN OF SKIN [None]
  - PRURITUS [None]
  - SKIN DISORDER [None]
